FAERS Safety Report 12285009 (Version 2)
Quarter: 2016Q2

REPORT INFORMATION
  Report Type: Spontaneous
  Country: US (occurrence: US)
  Receive Date: 20160420
  Receipt Date: 20160421
  Transmission Date: 20160815
  Serious: Yes (Other)
  Sender: FDA-Public Use
  Company Number: US-JNJFOC-20160413637

PATIENT
  Sex: Male
  Weight: 25.86 kg

DRUGS (5)
  1. SINGULAIR [Suspect]
     Active Substance: MONTELUKAST SODIUM
     Indication: MULTIPLE ALLERGIES
     Dosage: TOOK FOR A WEEK
     Route: 065
     Dates: start: 2015, end: 2015
  2. REMICADE [Concomitant]
     Active Substance: INFLIXIMAB
     Indication: CROHN^S DISEASE
     Dosage: INCREASE OF FREQUENCY TO EVERY 4 WEEKS FROM JAN/2014 TO AUG/2015
     Route: 065
     Dates: end: 201508
  3. ZYRTEC [Suspect]
     Active Substance: CETIRIZINE HYDROCHLORIDE
     Indication: MULTIPLE ALLERGIES
     Dosage: TOOK FOR A WEEK
     Route: 065
     Dates: start: 2015, end: 2015
  4. REMICADE [Concomitant]
     Active Substance: INFLIXIMAB
     Indication: CROHN^S DISEASE
     Dosage: -IN 2006, 2007, OR 2008 WHICH HE RECEIVED EVERY 8, 10 OR 12 WEEKS.??- DISCONTINUED REMICADE SEP/2014
     Route: 065
     Dates: start: 2006, end: 201409
  5. ZYRTEC [Suspect]
     Active Substance: CETIRIZINE HYDROCHLORIDE
     Route: 065

REACTIONS (3)
  - Haemorrhage [Recovered/Resolved]
  - Diarrhoea [Recovered/Resolved]
  - Condition aggravated [Recovered/Resolved]

NARRATIVE: CASE EVENT DATE: 2015
